FAERS Safety Report 6168289-9 (Version None)
Quarter: 2009Q2

REPORT INFORMATION
  Report Type: 
  Country: None (occurrence: None)
  Receive Date: 20090424
  Receipt Date: 20090424
  Transmission Date: 20091009
  Serious: Yes (Disabling)
  Sender: FDA-Public Use
  Company Number: None

PATIENT
  Age: 28 Year
  Sex: Male
  Weight: 85 kg

DRUGS (1)
  1. NEW CENTRUM 325 MULTIMINERAL/MULTIVITAMIN WYETH CONSUMER HEALTHCARE [Suspect]
     Dosage: 20 1 PER DAY UNK
     Dates: start: 20090410, end: 20090422

REACTIONS (2)
  - ABDOMINAL DISCOMFORT [None]
  - ABDOMINAL PAIN UPPER [None]
